FAERS Safety Report 15446602 (Version 1)
Quarter: 2018Q3

REPORT INFORMATION
  Report Type: Spontaneous
  Country: US (occurrence: US)
  Receive Date: 20180928
  Receipt Date: 20180928
  Transmission Date: 20181010
  Serious: No
  Sender: FDA-Public Use
  Company Number: US-AMGEN-USASP2018095209

PATIENT
  Age: 70 Year
  Sex: Female

DRUGS (11)
  1. OMEPRAZOLE. [Concomitant]
     Active Substance: OMEPRAZOLE
     Dosage: UNK
  2. LEXAPRO [Concomitant]
     Active Substance: ESCITALOPRAM OXALATE
     Dosage: 20 MG, UNK
  3. BENADRYL [Concomitant]
     Active Substance: DIPHENHYDRAMINE HYDROCHLORIDE
     Dosage: UNK, AS NECESSARY
  4. TEMAZEPAM. [Concomitant]
     Active Substance: TEMAZEPAM
     Indication: INSOMNIA
     Dosage: UNK
  5. VITAMIN D [Concomitant]
     Active Substance: CHOLECALCIFEROL
     Dosage: UNK
  6. MELATONIN [Concomitant]
     Active Substance: MELATONIN
     Indication: INSOMNIA
     Dosage: UNK
  7. POTASSIUM [Concomitant]
     Active Substance: POTASSIUM
     Dosage: UNK
  8. PROLIA [Suspect]
     Active Substance: DENOSUMAB
     Indication: OSTEOPOROSIS POSTMENOPAUSAL
     Dosage: UNK, Q6MO
     Route: 065
  9. MULTIVITAMIN [Concomitant]
     Active Substance: VITAMINS
     Dosage: UNK
  10. TRAMADOL. [Concomitant]
     Active Substance: TRAMADOL
     Dosage: UNK
  11. TRAZODONE [Concomitant]
     Active Substance: TRAZODONE HYDROCHLORIDE
     Indication: INSOMNIA
     Dosage: UNK

REACTIONS (5)
  - Madarosis [Unknown]
  - Cough [Unknown]
  - Constipation [Unknown]
  - Skin fissures [Unknown]
  - Skin exfoliation [Unknown]

NARRATIVE: CASE EVENT DATE: 2018
